FAERS Safety Report 5714760-0 (Version None)
Quarter: 2008Q2

REPORT INFORMATION
  Report Type: 
  Country: None (occurrence: None)
  Receive Date: 20080423
  Receipt Date: 20060905
  Transmission Date: 20081010
  Serious: Yes (Death)
  Sender: FDA-Public Use
  Company Number: AU-ROCHE-461822

PATIENT
  Sex: Female
  Weight: 56 kg

DRUGS (6)
  1. CAPECITABINE [Suspect]
     Dosage: DOSE REPORTED AS '3150 MG' RECEIVED ON DAYS ONE TO FOURTEEN EVERY THREE WEEKS.
     Route: 048
     Dates: start: 20060815, end: 20060828
  2. BEVACIZUMAB [Suspect]
     Dosage: FREQUENCY AS PER PROTOCOL
     Route: 042
     Dates: start: 20060815
  3. LOPERAMIDE HCL [Concomitant]
     Dosage: DOSE: UNSPECIFIED PRN
     Route: 048
     Dates: start: 20060827, end: 20060901
  4. PYRIDOXINE [Concomitant]
     Route: 048
     Dates: start: 20060829, end: 20060901
  5. NYSTATIN [Concomitant]
     Dosage: DOSE: UNSPECIFIED ML/PRN
     Route: 048
     Dates: start: 20060829, end: 20060901
  6. LIGNOCAINE [Concomitant]
     Dosage: UNITS: ML
     Route: 048
     Dates: start: 20060829, end: 20060901

REACTIONS (1)
  - MYOCARDITIS [None]
